FAERS Safety Report 10748735 (Version 2)
Quarter: 2015Q1

REPORT INFORMATION
  Report Type: Spontaneous
  Country: HR (occurrence: HR)
  Receive Date: 20150129
  Receipt Date: 20150129
  Transmission Date: 20150721
  Serious: Yes (Life-Threatening)
  Sender: FDA-Public Use
  Company Number: HR-WATSON-2015-00721

PATIENT
  Age: 63 Year
  Sex: Male

DRUGS (2)
  1. PACLITAXEL (UNKNOWN) [Suspect]
     Active Substance: PACLITAXEL
     Indication: LUNG CARCINOMA CELL TYPE UNSPECIFIED STAGE 0
     Dosage: UNK
     Route: 042
     Dates: start: 20140709, end: 20140711
  2. CARBOPLATIN (UNKNOWN) [Suspect]
     Active Substance: CARBOPLATIN
     Indication: LUNG CARCINOMA CELL TYPE UNSPECIFIED STAGE 0
     Dosage: UNK
     Route: 042
     Dates: start: 20140709, end: 20140711

REACTIONS (8)
  - Anaemia [Recovered/Resolved]
  - Hypotension [Recovered/Resolved]
  - Muscle spasms [Recovered/Resolved]
  - Thrombocytopenia [Recovered/Resolved]
  - Tachypnoea [Recovered/Resolved]
  - Diarrhoea [Recovered/Resolved]
  - Gait deviation [Recovered/Resolved]
  - Febrile neutropenia [Recovered/Resolved]

NARRATIVE: CASE EVENT DATE: 20140717
